FAERS Safety Report 5884201-1 (Version None)
Quarter: 2008Q3

REPORT INFORMATION
  Report Type: 
  Country: None (occurrence: None)
  Receive Date: 20080915
  Receipt Date: 20080905
  Transmission Date: 20090109
  Serious: Yes (Hospitalization)
  Sender: FDA-Public Use
  Company Number: GB-ASTRAZENECA-2008GB01671

PATIENT
  Age: 76 Year
  Sex: Female

DRUGS (3)
  1. NEXIUM [Suspect]
     Route: 048
     Dates: start: 20080101, end: 20080516
  2. OMEPRAZOLE [Concomitant]
     Dates: end: 20080418
  3. RANITIDINE [Concomitant]
     Dates: start: 20080418, end: 20080101

REACTIONS (1)
  - HYPOMAGNESAEMIA [None]
